FAERS Safety Report 6159233-9 (Version None)
Quarter: 2009Q2

REPORT INFORMATION
  Report Type: 
  Country: None (occurrence: None)
  Receive Date: 20090417
  Receipt Date: 20090406
  Transmission Date: 20091009
  Serious: Yes (Other)
  Sender: FDA-Public Use
  Company Number: GB-PFIZER INC-2007087372

PATIENT

DRUGS (8)
  1. CHAMPIX [Suspect]
     Indication: SMOKING CESSATION THERAPY
     Dosage: 0.5 MG, 2X/DAY
     Route: 048
     Dates: start: 20070810, end: 20070816
  2. ANTIHYPERTENSIVES [Concomitant]
  3. ACETYLSALICYLIC ACID [Concomitant]
  4. ATENOLOL [Concomitant]
  5. ATORVASTATIN CALCIUM [Concomitant]
  6. BENDROFLUMETHIAZIDE [Concomitant]
  7. OESTRADIOL [Concomitant]
  8. DICLOFENAC [Concomitant]

REACTIONS (2)
  - BLOOD PRESSURE INCREASED [None]
  - VAGINAL HAEMORRHAGE [None]
